FAERS Safety Report 13738569 (Version 1)
Quarter: 2017Q3

REPORT INFORMATION
  Report Type: Spontaneous
  Country: US (occurrence: US)
  Receive Date: 20170710
  Receipt Date: 20170710
  Transmission Date: 20171127
  Serious: Yes (Other)
  Sender: FDA-Public Use
  Company Number: US-SAOL THERAPEUTICS-2016SAO01133

PATIENT
  Age: 59 Year
  Sex: Male

DRUGS (4)
  1. BACLOFEN. [Suspect]
     Active Substance: BACLOFEN
     Dosage: 162.10 ?G, \DAY
     Route: 037
     Dates: start: 20161103
  2. CLONIDINE. [Suspect]
     Active Substance: CLONIDINE
     Dosage: 315.66 ?G, \DAY
     Route: 037
     Dates: start: 20161103
  3. BUPIVICAINE [Suspect]
     Active Substance: BUPIVACAINE
     Dosage: 8.489 MG, \DAY
     Route: 037
     Dates: start: 20161103
  4. HYDROMORPHONE [Suspect]
     Active Substance: HYDROMORPHONE
     Dosage: 3.199 MG, \DAY
     Route: 037
     Dates: start: 20161103

REACTIONS (2)
  - Device infusion issue [Recovered/Resolved]
  - Pain [Recovered/Resolved]

NARRATIVE: CASE EVENT DATE: 20160814
